FAERS Safety Report 9440436 (Version 2)
Quarter: 2013Q3

REPORT INFORMATION
  Report Type: Report from Study
  Country: AR (occurrence: AR)
  Receive Date: 20130805
  Receipt Date: 20130813
  Transmission Date: 20140515
  Serious: Yes (Hospitalization)
  Sender: FDA-Public Use
  Company Number: PHHO2013AR009968

PATIENT
  Age: 66 Year
  Sex: Male
  Weight: 93.1 kg

DRUGS (7)
  1. BLINDED ALISKIREN [Suspect]
     Indication: CARDIAC FAILURE
     Dosage: CODE NOT BROKEN
     Route: 048
     Dates: start: 20121105, end: 20130517
  2. BLINDED ENALAPRIL [Suspect]
     Indication: CARDIAC FAILURE
     Dosage: CODE NOT BROKEN
     Route: 048
     Dates: start: 20121105, end: 20130517
  3. BLINDED NO TREATMENT RECEIVED [Suspect]
     Indication: CARDIAC FAILURE
     Dosage: CODE NOT BROKEN
     Route: 048
     Dates: start: 20121105, end: 20130517
  4. FUROSEMIDE [Concomitant]
     Indication: CARDIAC FAILURE
     Dosage: 60 MG, BID
  5. SPIRONOLACTONE [Concomitant]
     Indication: CARDIAC FAILURE
     Dosage: 25 MG, QD
  6. CARVEDILOL [Concomitant]
     Indication: CARDIAC FAILURE
     Dosage: 50 MG, BID
  7. ENALAPRIL [Concomitant]
     Indication: CARDIAC FAILURE
     Dosage: 20 MG, BID
     Dates: start: 20130518

REACTIONS (1)
  - Supraventricular tachycardia [Recovered/Resolved]
